FAERS Safety Report 10187848 (Version 1)
Quarter: 2014Q2

REPORT INFORMATION
  Report Type: Spontaneous
  Country: US (occurrence: US)
  Receive Date: 20140522
  Receipt Date: 20140522
  Transmission Date: 20141212
  Serious: No
  Sender: FDA-Public Use
  Company Number: US-SA-2013SA103364

PATIENT
  Age: 74 Year
  Sex: Male

DRUGS (1)
  1. LANTUS [Suspect]
     Indication: DIABETES MELLITUS
     Dosage: 94 UNITS AT BEDTIME AND 20 UNITS IN MORNING
     Route: 051
     Dates: start: 1980

REACTIONS (1)
  - Hypoacusis [Not Recovered/Not Resolved]
